FAERS Safety Report 5596568-2 (Version None)
Quarter: 2008Q1

REPORT INFORMATION
  Report Type: 
  Country: None (occurrence: None)
  Receive Date: 20080118
  Receipt Date: 20080109
  Transmission Date: 20080703
  Serious: Yes (Death, Hospitalization, Other)
  Sender: FDA-Public Use
  Company Number: FR-PFIZER INC-2007095542

PATIENT
  Sex: Male
  Weight: 101 kg

DRUGS (3)
  1. CHANTIX [Suspect]
     Route: 048
  2. INDAPAMIDE [Concomitant]
  3. ALL OTHER THERAPEUTIC PRODUCTS [Concomitant]
     Dates: start: 20070601

REACTIONS (5)
  - ARTHRALGIA [None]
  - CHEST PAIN [None]
  - MALAISE [None]
  - MYOCARDIAL INFARCTION [None]
  - SUDDEN DEATH [None]
